FAERS Safety Report 4845437-1 (Version None)
Quarter: 2005Q4

REPORT INFORMATION
  Report Type: 
  Country: None (occurrence: None)
  Receive Date: 20051125
  Receipt Date: 20051115
  Transmission Date: 20060501
  Serious: Yes (Other)
  Sender: FDA-Public Use
  Company Number: HQWYE651604APR05

PATIENT
  Age: 25 Year
  Sex: Female

DRUGS (7)
  1. EFEXOR XR (VENLAFAXINE HYDROCHLORIDE, CAPSULE, EXTENDED RELEASE) [Suspect]
     Dosage: 75 MG 1X PER 1 DAY, ORAL
     Route: 048
     Dates: start: 20040107
  2. ABILIFY [Suspect]
     Indication: SCHIZOPHRENIA
     Dosage: 15 MG 1X PER 1 DAY
     Dates: start: 20040621, end: 20040824
  3. EFFEXOR [Suspect]
     Dates: start: 20040108
  4. OLANZAPINE [Concomitant]
  5. HALOPERIDOL [Concomitant]
  6. DICLOXACILLIN [Concomitant]
  7. ALPRAZOLAM [Concomitant]

REACTIONS (7)
  - CONGENITAL HYDRONEPHROSIS [None]
  - DRUG EXPOSURE DURING PREGNANCY [None]
  - FINGER DEFORMITY [None]
  - HEART DISEASE CONGENITAL [None]
  - KIDNEY SMALL [None]
  - LIMB MALFORMATION [None]
  - URETERIC DILATATION [None]
